FAERS Safety Report 15489852 (Version 1)
Quarter: 2018Q4

REPORT INFORMATION
  Report Type: Spontaneous
  Country: US (occurrence: US)
  Receive Date: 20181011
  Receipt Date: 20181011
  Transmission Date: 20190205
  Serious: Yes (Other)
  Sender: FDA-Public Use
  Company Number: US-ELI_LILLY_AND_COMPANY-US201809012899

PATIENT
  Age: 36 Year
  Sex: Male

DRUGS (3)
  1. CYMBALTA [Suspect]
     Active Substance: DULOXETINE HYDROCHLORIDE
     Indication: PRODUCT USED FOR UNKNOWN INDICATION
     Dosage: UNK UNK, UNKNOWN
     Route: 065
  2. LEMTRADA [Concomitant]
     Active Substance: ALEMTUZUMAB
     Indication: MULTIPLE SCLEROSIS
     Dosage: 12 MG, DAILY
     Route: 042
     Dates: start: 20150413, end: 20150417
  3. LEMTRADA [Concomitant]
     Active Substance: ALEMTUZUMAB
     Dosage: 12 MG, DAILY
     Route: 042
     Dates: start: 20160602, end: 20160606

REACTIONS (5)
  - Insomnia [Recovering/Resolving]
  - Rheumatoid arthritis [Unknown]
  - Restless legs syndrome [Unknown]
  - Emotional disorder [Unknown]
  - Weight decreased [Unknown]
